FAERS Safety Report 25151973 (Version 3)
Quarter: 2025Q2

REPORT INFORMATION
  Report Type: Spontaneous
  Country: FR (occurrence: FR)
  Receive Date: 20250402
  Receipt Date: 20250520
  Transmission Date: 20250716
  Serious: Yes (Hospitalization, Other)
  Sender: BAYER HEALTHCARE PHARMACEUTICALS INC.
  Company Number: FR-BAYER-2025A042311

PATIENT
  Age: 46 Year
  Sex: Female

DRUGS (1)
  1. MIRENA [Suspect]
     Active Substance: LEVONORGESTREL
     Indication: Hormonal contraception
     Dosage: 20?G/DAY
     Route: 015
     Dates: start: 20211124, end: 20220515

REACTIONS (12)
  - Idiopathic intracranial hypertension [Recovered/Resolved]
  - Gastrooesophageal reflux disease [Not Recovered/Not Resolved]
  - Endometrial stromal sarcoma [Recovered/Resolved]
  - Oesophagitis [Not Recovered/Not Resolved]
  - Device breakage [None]
  - Abnormal weight gain [Recovered/Resolved]
  - Ageusia [Not Recovered/Not Resolved]
  - Dyspnoea [Recovered/Resolved]
  - Vaginal discharge [Recovered/Resolved]
  - Asthma [Recovered/Resolved]
  - Sinus tachycardia [Recovered/Resolved]
  - Genital haemorrhage [None]

NARRATIVE: CASE EVENT DATE: 20211201
